FAERS Safety Report 22088510 (Version 1)
Quarter: 2023Q1

REPORT INFORMATION
  Report Type: Spontaneous
  Country: PT (occurrence: PT)
  Receive Date: 20230313
  Receipt Date: 20230313
  Transmission Date: 20230417
  Serious: Yes (Other)
  Sender: FDA-Public Use
  Company Number: PT-MYLANLABS-2023M1023059

PATIENT
  Age: 78 Year
  Sex: Male

DRUGS (1)
  1. METFORMIN [Suspect]
     Active Substance: METFORMIN HYDROCHLORIDE
     Indication: Type 2 diabetes mellitus
     Dosage: UNK
     Route: 065
     Dates: start: 2006

REACTIONS (12)
  - Parkinson^s disease [Unknown]
  - Myocardial ischaemia [Unknown]
  - Anaemia [Unknown]
  - Folate deficiency [Unknown]
  - Fatigue [Unknown]
  - Dyspnoea [Unknown]
  - Hypertension [Unknown]
  - Oedema [Unknown]
  - Depression [Unknown]
  - Normochromic anaemia [Unknown]
  - Dyslipidaemia [Unknown]
  - Peripheral arterial occlusive disease [Unknown]

NARRATIVE: CASE EVENT DATE: 20090101
